FAERS Safety Report 5905927-7 (Version None)
Quarter: 2008Q4

REPORT INFORMATION
  Report Type: 
  Country: None (occurrence: None)
  Receive Date: 20081001
  Receipt Date: 20081001
  Transmission Date: 20090506
  Serious: Yes (Other)
  Sender: FDA-Public Use
  Company Number: None

PATIENT
  Sex: Female
  Weight: 61.2356 kg

DRUGS (2)
  1. PRILOSEC [Suspect]
     Indication: GASTROOESOPHAGEAL REFLUX DISEASE
     Dosage: 40MG DAILY PO
     Route: 048
     Dates: start: 20080401, end: 20080528
  2. RANITIDINE [Suspect]
     Dosage: 150MG DAILY PO
     Route: 048
     Dates: start: 20080401, end: 20080528

REACTIONS (3)
  - DYSPNOEA [None]
  - RESPIRATORY DISTRESS [None]
  - WHEEZING [None]
